FAERS Safety Report 8927589 (Version 8)
Quarter: 2018Q1

REPORT INFORMATION
  Report Type: Report from Study
  Country: JP (occurrence: JP)
  Receive Date: 20121127
  Receipt Date: 20180301
  Transmission Date: 20180509
  Serious: Yes (Death, Life-Threatening, Hospitalization, Other)
  Sender: FDA-Public Use
  Company Number: JP-PFIZER INC-2012138962

PATIENT
  Age: 68 Year
  Sex: Male
  Weight: 65.5 kg

DRUGS (7)
  1. TOFACITINIB CITRATE [Suspect]
     Active Substance: TOFACITINIB CITRATE
     Indication: PSORIASIS
     Dosage: 10 MG, 2X/DAY
     Route: 048
     Dates: start: 20111227, end: 20120411
  2. TOFACITINIB CITRATE [Suspect]
     Active Substance: TOFACITINIB CITRATE
     Dosage: 5 MG, 2X/DAY
     Route: 048
     Dates: start: 20120507, end: 20120510
  3. NU LOTAN [Concomitant]
     Active Substance: LOSARTAN
     Indication: HYPERTENSION
     Dosage: 50 MG, 1X/DAY
     Route: 048
  4. OMEPRAL [Concomitant]
     Active Substance: OMEPRAZOLE
     Indication: GASTRITIS PROPHYLAXIS
     Dosage: 10 MG, 1X/DAY
     Route: 048
     Dates: end: 20120905
  5. MAALOX ANTACID [Concomitant]
     Active Substance: ALUMINUM HYDROXIDE\DIMETHICONE\MAGNESIUM HYDROXIDE
     Indication: GASTRITIS PROPHYLAXIS
     Dosage: 1 DF, 3X/DAY
     Route: 048
  6. CORINAEL CR [Concomitant]
     Active Substance: NIFEDIPINE
     Indication: HYPERTENSION
     Dosage: 40 MG, 1X/DAY
     Route: 048
  7. MAGMITT [Concomitant]
     Active Substance: MAGNESIUM OXIDE
     Indication: CONSTIPATION
     Dosage: 330 MG, 4X/DAY
     Route: 048
     Dates: start: 20120322

REACTIONS (1)
  - Pancreatic carcinoma [Fatal]

NARRATIVE: CASE EVENT DATE: 20120607
